FAERS Safety Report 17205372 (Version 1)
Quarter: 2019Q4

REPORT INFORMATION
  Report Type: Spontaneous
  Country: US (occurrence: US)
  Receive Date: 20191204
  Receipt Date: 20191204
  Transmission Date: 20200122
  Serious: No
  Sender: FDA-Public Use
  Company Number: None

PATIENT
  Age: 72 Year
  Sex: Female

DRUGS (1)
  1. CAPECITABINE 500MG TAB [Suspect]
     Active Substance: CAPECITABINE
     Indication: CHEMOTHERAPY
     Dosage: 3 TABS 2 X DAY ORAL
     Route: 048
     Dates: start: 20190126

REACTIONS (2)
  - Pulmonary embolism [None]
  - Therapy cessation [None]

NARRATIVE: CASE EVENT DATE: 20191203
